FAERS Safety Report 12781745 (Version 1)
Quarter: 2016Q3

REPORT INFORMATION
  Report Type: Report from Study
  Country: US (occurrence: US)
  Receive Date: 20160926
  Receipt Date: 20160926
  Transmission Date: 20161109
  Serious: Yes (Death)
  Sender: FDA-Public Use
  Company Number: US-ACTELION-A-US2016-142589

PATIENT
  Age: 49 Year
  Sex: Female

DRUGS (1)
  1. VELETRI [Suspect]
     Active Substance: EPOPROSTENOL
     Indication: PULMONARY ARTERIAL HYPERTENSION
     Dosage: 67 NG/KG, PER MIN
     Route: 042
     Dates: start: 20141008, end: 20160914

REACTIONS (1)
  - Pulmonary arterial hypertension [Fatal]
